FAERS Safety Report 5739616-9 (Version None)
Quarter: 2008Q2

REPORT INFORMATION
  Report Type: 
  Country: None (occurrence: None)
  Receive Date: 20080513
  Receipt Date: 20071002
  Transmission Date: 20081010
  Serious: Yes (Life-Threatening)
  Sender: FDA-Public Use
  Company Number: 81330

PATIENT
  Age: 59 Year
  Sex: Male

DRUGS (3)
  1. IBUPROFEN [Suspect]
     Indication: PAIN
     Dosage: 400MG/3/1DAYS/ORAL
     Route: 048
     Dates: start: 20070915, end: 20070918
  2. OLANZAPINE [Concomitant]
  3. ACETAMINOPHEN [Concomitant]

REACTIONS (1)
  - CARDIAC FAILURE [None]
